FAERS Safety Report 8067532-9 (Version None)
Quarter: 2012Q1

REPORT INFORMATION
  Report Type: 
  Country: None (occurrence: None)
  Receive Date: 20120124
  Receipt Date: 20120118
  Transmission Date: 20120608
  Serious: Yes (Hospitalization)
  Sender: FDA-Public Use
  Company Number: NO-B.I. PHARMACEUTICALS,INC./RIDGEFIELD-2012-SW-00039NO

PATIENT
  Sex: Female

DRUGS (7)
  1. LIPITOR [Concomitant]
  2. PRADAXA [Suspect]
     Indication: ATRIAL FIBRILLATION
     Dosage: 220 MG
     Dates: start: 20111208, end: 20120104
  3. ATENONOL [Concomitant]
  4. LORATANDIN [Concomitant]
  5. LERCANIDIPINE [Concomitant]
  6. LASIK RETARD [Concomitant]
  7. OXAZEPAM [Concomitant]

REACTIONS (2)
  - DIZZINESS [None]
  - HEADACHE [None]
